FAERS Safety Report 22331486 (Version 1)
Quarter: 2023Q2

REPORT INFORMATION
  Report Type: Spontaneous
  Country: FI (occurrence: FI)
  Receive Date: 20230517
  Receipt Date: 20230517
  Transmission Date: 20230722
  Serious: Yes (Hospitalization, Other)
  Sender: FDA-Public Use
  Company Number: FI-JUBILANT CADISTA PHARMACEUTICALS-2023FI000353

PATIENT
  Sex: Female

DRUGS (1)
  1. QUETIAPINE FUMARATE [Suspect]
     Active Substance: QUETIAPINE FUMARATE
     Indication: Product used for unknown indication
     Dosage: UNK,  UNK

REACTIONS (5)
  - Gestational diabetes [Unknown]
  - Maternal exposure during pregnancy [Unknown]
  - Postpartum haemorrhage [Unknown]
  - Hospitalisation [Unknown]
  - Low birth weight baby [Unknown]
